FAERS Safety Report 21286723 (Version 1)
Quarter: 2022Q3

REPORT INFORMATION
  Report Type: Spontaneous
  Country: US (occurrence: US)
  Receive Date: 20220902
  Receipt Date: 20220902
  Transmission Date: 20221027
  Serious: Yes (Other)
  Sender: FDA-Public Use
  Company Number: US-PFIZER INC-202201095250

PATIENT
  Age: 28 Year
  Sex: Male

DRUGS (3)
  1. METHOTREXATE SODIUM [Suspect]
     Active Substance: METHOTREXATE SODIUM
     Indication: Skin lesion
     Dosage: 7.5 MG, WEEKLY
     Route: 048
     Dates: start: 201607
  2. METHOTREXATE SODIUM [Suspect]
     Active Substance: METHOTREXATE SODIUM
     Dosage: 20 MG, WEEKLY
     Route: 048
     Dates: end: 201702
  3. PREDNISONE [Suspect]
     Active Substance: PREDNISONE
     Indication: Skin lesion
     Dosage: 40 MG, DAILY
     Dates: start: 201607, end: 201702

REACTIONS (2)
  - Disease progression [Unknown]
  - Pyrexia [Unknown]

NARRATIVE: CASE EVENT DATE: 20170201
